FAERS Safety Report 5671024-1 (Version None)
Quarter: 2008Q1

REPORT INFORMATION
  Report Type: 
  Country: None (occurrence: None)
  Receive Date: 20080318
  Receipt Date: 20080307
  Transmission Date: 20080703
  Serious: Yes (Hospitalization, Disabling)
  Sender: FDA-Public Use
  Company Number: JP-ELI_LILLY_AND_COMPANY-JP200803001752

PATIENT
  Age: 59 Year
  Sex: Male

DRUGS (3)
  1. HUMALOG MIX 75/25 [Suspect]
     Indication: DIABETES MELLITUS
     Dosage: 16 IU, 2/D
     Route: 058
     Dates: start: 20080227, end: 20080303
  2. LEVEMIR [Concomitant]
     Indication: DIABETES MELLITUS
     Dates: end: 20080226
  3. NOVORAPID [Concomitant]
     Indication: DIABETES MELLITUS
     Dates: end: 20080226

REACTIONS (1)
  - LIVER DISORDER [None]
